FAERS Safety Report 4430944-6 (Version None)
Quarter: 2004Q3

REPORT INFORMATION
  Report Type: 
  Country: None (occurrence: None)
  Receive Date: 20040824
  Receipt Date: 20040701
  Transmission Date: 20050211
  Serious: Yes (Hospitalization)
  Sender: FDA-Public Use
  Company Number: JP-ROCHE-373013

PATIENT
  Age: 60 Year
  Sex: Female
  Weight: 56.5 kg

DRUGS (2)
  1. PEGASYS [Suspect]
     Dosage: PER WEEK
     Route: 058
     Dates: start: 20030525, end: 20040624
  2. CLARITHROMYCIN [Concomitant]
     Indication: SINUSITIS
     Route: 048
     Dates: start: 20040715

REACTIONS (4)
  - EPISTAXIS [None]
  - PYREXIA [None]
  - SINUSITIS [None]
  - VENTRICULAR EXTRASYSTOLES [None]
